FAERS Safety Report 18394865 (Version 1)
Quarter: 2020Q4

REPORT INFORMATION
  Report Type: Spontaneous
  Country: GB (occurrence: GB)
  Receive Date: 20201017
  Receipt Date: 20201017
  Transmission Date: 20210114
  Serious: Yes (Other)
  Sender: FDA-Public Use
  Company Number: NVSC2020GB275536

PATIENT
  Age: 67 Year
  Sex: Female
  Weight: 66.22 kg

DRUGS (2)
  1. TRAVATAN [Concomitant]
     Active Substance: TRAVOPROST
     Indication: PRODUCT USED FOR UNKNOWN INDICATION
     Dosage: UNK
     Route: 065
  2. BRINZOLAMIDE [Suspect]
     Active Substance: BRINZOLAMIDE
     Dosage: 2 DRP, QD (EACH EYE IN MORNING)
     Route: 047
     Dates: start: 20200101, end: 20200801

REACTIONS (25)
  - Palpitations [Unknown]
  - Abdominal discomfort [Unknown]
  - Fatigue [Unknown]
  - Dry mouth [Unknown]
  - Throat irritation [Unknown]
  - Eye inflammation [Unknown]
  - Tinnitus [Unknown]
  - Eye pain [Unknown]
  - Asthenopia [Unknown]
  - Cough [Recovering/Resolving]
  - Asthenia [Unknown]
  - Photopsia [Unknown]
  - Blood pressure increased [Unknown]
  - Dyspnoea [Unknown]
  - Sensation of foreign body [Unknown]
  - Sneezing [Recovering/Resolving]
  - Ocular hyperaemia [Unknown]
  - Dizziness [Unknown]
  - Dysphonia [Unknown]
  - Eye discharge [Unknown]
  - Headache [Unknown]
  - Memory impairment [Unknown]
  - Vision blurred [Unknown]
  - Lacrimation increased [Recovering/Resolving]
  - Emotional distress [Unknown]

NARRATIVE: CASE EVENT DATE: 20200101
